FAERS Safety Report 5131446-4 (Version None)
Quarter: 2006Q4

REPORT INFORMATION
  Report Type: 
  Country: None (occurrence: None)
  Receive Date: 20061020
  Receipt Date: 20061012
  Transmission Date: 20070319
  Serious: Yes (Hospitalization, Other)
  Sender: FDA-Public Use
  Company Number: US-ABBOTT-06P-163-0346842-00

PATIENT
  Sex: Female
  Weight: 107.5 kg

DRUGS (5)
  1. HUMIRA [Suspect]
     Indication: RHEUMATOID ARTHRITIS
     Route: 058
     Dates: start: 20060801, end: 20060821
  2. HUMIRA [Suspect]
     Route: 058
     Dates: start: 20030101, end: 20040101
  3. HUMIRA [Suspect]
     Route: 058
     Dates: start: 20040101, end: 20051201
  4. HUMIRA [Suspect]
     Route: 058
     Dates: start: 20051201, end: 20060801
  5. ATACANOL [Concomitant]
     Indication: DRUG USE FOR UNKNOWN INDICATION
     Route: 048

REACTIONS (5)
  - DYSPNOEA [None]
  - INTERSTITIAL LUNG DISEASE [None]
  - LYMPHADENOPATHY MEDIASTINAL [None]
  - PARATRACHEAL LYMPHADENOPATHY [None]
  - PRODUCTIVE COUGH [None]
